FAERS Safety Report 9189897 (Version 2)
Quarter: 2013Q2

REPORT INFORMATION
  Report Type: Spontaneous
  Country: JP (occurrence: JP)
  Receive Date: 20130326
  Receipt Date: 20130404
  Transmission Date: 20140414
  Serious: No
  Sender: FDA-Public Use
  Company Number: JP-PFIZER INC-2013096266

PATIENT
  Age: 70 Year
  Sex: Male

DRUGS (2)
  1. LIPITOR [Suspect]
     Dosage: 5 MG, 1X/DAY
     Route: 048
  2. LIPITOR [Suspect]
     Dosage: 5 MG, 1X/DAY
     Route: 050

REACTIONS (1)
  - Intentional drug misuse [Unknown]
